FAERS Safety Report 8320845-5 (Version None)
Quarter: 2012Q2

REPORT INFORMATION
  Report Type: 
  Country: None (occurrence: None)
  Receive Date: 20120430
  Receipt Date: 20120420
  Transmission Date: 20120825
  Serious: Yes (Other)
  Sender: FDA-Public Use
  Company Number: PHHY2012JP033582

PATIENT
  Age: 80 Year
  Sex: Male

DRUGS (2)
  1. EXELON [Suspect]
     Indication: DEMENTIA ALZHEIMER'S TYPE
     Dosage: 13.5 MG, DAILY
     Route: 062
     Dates: start: 20120307, end: 20120328
  2. LIDOMEX [Suspect]
     Indication: APPLICATION SITE DERMATITIS
     Route: 062
     Dates: end: 20120328

REACTIONS (5)
  - APPLICATION SITE DERMATITIS [None]
  - DRUG HYPERSENSITIVITY [None]
  - DERMATITIS [None]
  - APPLICATION SITE BLEEDING [None]
  - APPLICATION SITE SCAB [None]
